FAERS Safety Report 14198094 (Version 14)
Quarter: 2019Q1

REPORT INFORMATION
  Report Type: Report from Study
  Country: JP (occurrence: JP)
  Receive Date: 20171117
  Receipt Date: 20190227
  Transmission Date: 20190417
  Serious: Yes (Death, Hospitalization, Other)
  Sender: FDA-Public Use
  Company Number: JP-BRISTOL-MYERS SQUIBB COMPANY-BMS-2017-103410

PATIENT
  Age: 64 Year
  Sex: Male
  Weight: 64 kg

DRUGS (4)
  1. SODIUM PICOSULFATE [Concomitant]
     Active Substance: SODIUM PICOSULFATE
     Indication: CONSTIPATION
     Dosage: UNK
     Route: 048
     Dates: start: 201612
  2. BETAMETHASONE. [Suspect]
     Active Substance: BETAMETHASONE
     Indication: INTERSTITIAL LUNG DISEASE
     Route: 065
  3. YERVOY [Concomitant]
     Active Substance: IPILIMUMAB
     Indication: MALIGNANT MELANOMA
     Dosage: 3 MG/KG, UNK
     Route: 041
     Dates: start: 20170202, end: 20170202
  4. NIVOLUMAB [Suspect]
     Active Substance: NIVOLUMAB
     Indication: MALIGNANT MELANOMA
     Dosage: 3 MG/KG, Q2WK
     Route: 041
     Dates: start: 20160818, end: 20161208

REACTIONS (5)
  - Lower gastrointestinal haemorrhage [Recovered/Resolved]
  - Interstitial lung disease [Not Recovered/Not Resolved]
  - Gastrointestinal perforation [Recovered/Resolved]
  - Pneumocystis jirovecii pneumonia [Recovered/Resolved]
  - Malignant neoplasm progression [Fatal]

NARRATIVE: CASE EVENT DATE: 20161219
